FAERS Safety Report 9952633 (Version 2)
Quarter: 2014Q1

REPORT INFORMATION
  Report Type: Report from Study
  Country: US (occurrence: US)
  Receive Date: 20140304
  Receipt Date: 20140304
  Transmission Date: 20141002
  Serious: Yes (Hospitalization)
  Sender: FDA-Public Use
  Company Number: US-ABBVIE-13P-163-1059774-00

PATIENT
  Sex: Female
  Weight: 73 kg

DRUGS (4)
  1. HUMIRA [Suspect]
     Indication: CROHN^S DISEASE
     Dates: start: 201107, end: 201206
  2. HUMIRA [Suspect]
     Dates: start: 201206, end: 20130227
  3. HUMIRA [Suspect]
     Dates: start: 20130227
  4. BENTYL [Concomitant]
     Indication: ABDOMINAL PAIN
     Dates: start: 201107

REACTIONS (3)
  - Abscess [Not Recovered/Not Resolved]
  - Abdominal pain [Unknown]
  - Diarrhoea [Unknown]
